FAERS Safety Report 9826078 (Version 1)
Quarter: 2013Q4

REPORT INFORMATION
  Report Type: Spontaneous
  Country: US (occurrence: None)
  Receive Date: 20131108
  Receipt Date: 20131108
  Transmission Date: 20140711
  Serious: Yes (Other)
  Sender: FDA-Public Use
  Company Number: 2013034878

PATIENT
  Age: 43 Year
  Sex: 0

DRUGS (1)
  1. MONONINE [Suspect]
     Indication: FACTOR IX DEFICIENCY

REACTIONS (1)
  - Factor IX inhibition [None]
